FAERS Safety Report 11067764 (Version 2)
Quarter: 2015Q3

REPORT INFORMATION
  Report Type: Spontaneous
  Country: ES (occurrence: ES)
  Receive Date: 20150427
  Receipt Date: 20150731
  Transmission Date: 20151125
  Serious: Yes (Hospitalization, Other)
  Sender: FDA-Public Use
  Company Number: ES-AMGEN-ESPSP2015039672

PATIENT
  Age: 79 Year
  Sex: Female
  Weight: 64 kg

DRUGS (5)
  1. PROLIA [Suspect]
     Active Substance: DENOSUMAB
     Indication: OSTEOPOROSIS
     Dosage: 60 MG, Q6MO
     Route: 058
     Dates: start: 20150305
  2. AVIDOXY [Concomitant]
     Route: 048
  3. MEMANTINE. [Concomitant]
     Active Substance: MEMANTINE
     Route: 048
  4. DIGOXINE [Concomitant]
     Active Substance: DIGOXIN
     Route: 048
  5. SEGURIL [Concomitant]
     Active Substance: FUROSEMIDE
     Route: 048

REACTIONS (4)
  - Hypocalcaemia [Recovered/Resolved]
  - Disorientation [Unknown]
  - Abdominal operation [Unknown]
  - Malabsorption [Unknown]

NARRATIVE: CASE EVENT DATE: 20150406
